FAERS Safety Report 14412851 (Version 2)
Quarter: 2018Q2

REPORT INFORMATION
  Report Type: Report from Study
  Country: JP (occurrence: JP)
  Receive Date: 20180119
  Receipt Date: 20180419
  Transmission Date: 20180711
  Serious: Yes (Other)
  Sender: FDA-Public Use
  Company Number: JP-FERRINGPH-2018FE00076

PATIENT

DRUGS (7)
  1. BAYASPIRIN [Concomitant]
     Active Substance: ASPIRIN
     Indication: PREGNANCY
     Dosage: 100 MG, UNK
     Route: 064
     Dates: start: 20151104, end: 20151230
  2. PROGESTON DEPOT [Concomitant]
     Indication: PREGNANCY
     Dosage: 125 MG, UNK
     Route: 064
     Dates: start: 20151104, end: 20151111
  3. PROGESTERONE. [Suspect]
     Active Substance: PROGESTERONE
     Indication: ASSISTED FERTILISATION
     Dosage: 100 MG, 3 TIMES DAILY
     Route: 064
     Dates: start: 20151104, end: 20151207
  4. LUTORAL [Concomitant]
     Active Substance: CHLORMADINONE ACETATE
     Indication: PREGNANCY
     Dosage: 6 MG, UNK
     Route: 064
     Dates: start: 20151104, end: 20151207
  5. ESTRANA [Concomitant]
     Active Substance: ESTRADIOL
     Indication: PREGNANCY
     Dosage: UNK
     Route: 064
     Dates: end: 20151207
  6. ESTRANA [Concomitant]
     Active Substance: ESTRADIOL
     Dosage: UNK
     Route: 064
  7. ESTRANA [Concomitant]
     Active Substance: ESTRADIOL
     Dosage: UNK
     Route: 064
     Dates: start: 20151104

REACTIONS (1)
  - Low birth weight baby [Unknown]

NARRATIVE: CASE EVENT DATE: 20160614
